FAERS Safety Report 25976655 (Version 1)
Quarter: 2025Q4

REPORT INFORMATION
  Report Type: Spontaneous
  Country: EU (occurrence: EU)
  Receive Date: 20251029
  Receipt Date: 20251029
  Transmission Date: 20260117
  Serious: Yes (Hospitalization)
  Sender: ANI
  Company Number: EU-ANIPHARMA-2025-FR-000132

PATIENT
  Age: 66 Year
  Sex: Female
  Weight: 66 kg

DRUGS (12)
  1. CANDESARTAN CILEXETIL [Suspect]
     Active Substance: CANDESARTAN CILEXETIL
     Indication: Hypertension
     Dosage: 1 DOSAGE FORM IN 1 DAY
     Route: 048
     Dates: end: 20250918
  2. CALCIUM CARBONATE\CHOLECALCIFEROL [Concomitant]
     Active Substance: CALCIUM CARBONATE\CHOLECALCIFEROL
  3. BENSERAZIDE HYDROCHLORIDE\LEVODOPA [Suspect]
     Active Substance: BENSERAZIDE HYDROCHLORIDE\LEVODOPA
     Dosage: 1 DOSAGE FORM IN 1 DAY; 0.5 DOSAGE FORM IN 1 DAY;
     Route: 048
  4. PAROXETINE HYDROCHLORIDE [Suspect]
     Active Substance: PAROXETINE HYDROCHLORIDE
     Dosage: 1 DOSAGE FORM IN 1 DAY
     Dates: end: 20251008
  5. STALEVO [Suspect]
     Active Substance: CARBIDOPA\ENTACAPONE\LEVODOPA
     Dosage: 2 DOSAGE FORM
     Route: 048
     Dates: start: 202507, end: 20251008
  6. ALPRAZOLAM [Concomitant]
     Active Substance: ALPRAZOLAM
  7. APIXABAN [Concomitant]
     Active Substance: APIXABAN
  8. LERCANIDIPINE HYDROCHLORIDE [Concomitant]
     Active Substance: LERCANIDIPINE HYDROCHLORIDE
  9. BISOPROLOL [Concomitant]
     Active Substance: BISOPROLOL
  10. PRAVASTATIN [Concomitant]
     Active Substance: PRAVASTATIN
  11. AZARGA [Concomitant]
     Active Substance: BRINZOLAMIDE\TIMOLOL MALEATE
  12. CHOLECALCIFEROL [Concomitant]
     Active Substance: CHOLECALCIFEROL

REACTIONS (3)
  - Colitis microscopic [Recovered/Resolved]
  - Staphylococcal bacteraemia [Unknown]
  - Phlebitis [Unknown]

NARRATIVE: CASE EVENT DATE: 20250901
